FAERS Safety Report 23457453 (Version 1)
Quarter: 2024Q1

REPORT INFORMATION
  Report Type: Spontaneous
  Country: CN (occurrence: CN)
  Receive Date: 20240130
  Receipt Date: 20240130
  Transmission Date: 20240410
  Serious: Yes (Other)
  Sender: FDA-Public Use
  Company Number: CN-ORGANON-O2401CHN002562

PATIENT
  Age: 25 Year
  Sex: Female

DRUGS (3)
  1. SINGULAIR [Suspect]
     Active Substance: MONTELUKAST SODIUM
     Indication: Tracheobronchitis
     Dosage: 10 MG, QD, PO
     Route: 048
     Dates: start: 20240111, end: 20240115
  2. AMINOPHYLLINE\CHLORPHENIRAMINE MALEATE\METHOXYPHENAMINE HYDROCHLORIDE\ [Suspect]
     Active Substance: AMINOPHYLLINE\CHLORPHENIRAMINE MALEATE\METHOXYPHENAMINE HYDROCHLORIDE\NOSCAPINE
     Indication: Tracheobronchitis
     Dosage: 2 CAPS, TID, PO
     Route: 048
     Dates: start: 20240111, end: 20240115
  3. LEVOFLOXACIN [Suspect]
     Active Substance: LEVOFLOXACIN
     Indication: Tracheobronchitis
     Dosage: 0.5 G, QD, PO
     Route: 048
     Dates: start: 20240111, end: 20240114

REACTIONS (2)
  - Drug eruption [Recovering/Resolving]
  - Chest discomfort [Recovering/Resolving]

NARRATIVE: CASE EVENT DATE: 20240115
